FAERS Safety Report 5935917-X (Version None)
Quarter: 2008Q4

REPORT INFORMATION
  Report Type: 
  Country: None (occurrence: None)
  Receive Date: 20081030
  Receipt Date: 20080805
  Transmission Date: 20090506
  Serious: No
  Sender: FDA-Public Use
  Company Number: A0741115A

PATIENT
  Age: 54 Year
  Sex: Female

DRUGS (3)
  1. IMITREX [Suspect]
     Indication: CLUSTER HEADACHE
     Dosage: 5MG VARIABLE DOSE
     Route: 045
     Dates: start: 20050101, end: 20050101
  2. MULTIPLE MEDICATIONS [Concomitant]
  3. ALLERGY MEDICINE [Concomitant]

REACTIONS (1)
  - EPISTAXIS [None]
